FAERS Safety Report 5503466-9 (Version None)
Quarter: 2007Q4

REPORT INFORMATION
  Report Type: 
  Country: None (occurrence: None)
  Receive Date: 20071029
  Receipt Date: 20071012
  Transmission Date: 20080405
  Serious: Yes (Other)
  Sender: FDA-Public Use
  Company Number: 2007S1010444

PATIENT
  Age: 42 Year
  Sex: Female

DRUGS (3)
  1. ONDANSETRON HCL [Suspect]
     Indication: NAUSEA
     Dosage: 4 MG; INTRAVENOUS
     Route: 042
     Dates: start: 20070918, end: 20070918
  2. DIAMORPHINE [Concomitant]
  3. PARACETAMOL [Concomitant]

REACTIONS (2)
  - CHEST PAIN [None]
  - ELECTROCARDIOGRAM ST SEGMENT DEPRESSION [None]
